FAERS Safety Report 18735416 (Version 1)
Quarter: 2021Q1

REPORT INFORMATION
  Report Type: Report from Study
  Country: None (occurrence: AT)
  Receive Date: 20210113
  Receipt Date: 20210113
  Transmission Date: 20210419
  Serious: Yes (Death)
  Sender: FDA-Public Use
  Company Number: AT-ABBVIE-21K-009-3727632-00

PATIENT
  Sex: Male

DRUGS (3)
  1. DUODOPA [Suspect]
     Active Substance: CARBIDOPA\LEVODOPA
  2. MORPHINE [Concomitant]
     Active Substance: MORPHINE
     Indication: PRODUCT USED FOR UNKNOWN INDICATION
     Route: 062
  3. DUODOPA [Suspect]
     Active Substance: CARBIDOPA\LEVODOPA
     Indication: PARKINSON^S DISEASE
     Dosage: 16 H, MD= 7 ML, CR DAYTIME= 3.7 ML/H, ED= 2 ML?STRENGTH (CMP): 20 MG/ML 5 MG/ML
     Route: 050
     Dates: start: 20190411, end: 20210111

REACTIONS (1)
  - General physical health deterioration [Fatal]
